FAERS Safety Report 12417152 (Version 1)
Quarter: 2016Q2

REPORT INFORMATION
  Report Type: Report from Study
  Country: US (occurrence: US)
  Receive Date: 20160530
  Receipt Date: 20160530
  Transmission Date: 20160815
  Serious: Yes (Other)
  Sender: FDA-Public Use
  Company Number: US-JNJFOC-20140706062

PATIENT
  Age: 49 Year
  Sex: Female

DRUGS (1)
  1. SIMPONI ARIA [Suspect]
     Active Substance: GOLIMUMAB
     Indication: PRODUCT USED FOR UNKNOWN INDICATION
     Route: 042

REACTIONS (8)
  - Fatigue [Unknown]
  - Vision blurred [Unknown]
  - Pulmonary congestion [Unknown]
  - Oedema [Unknown]
  - Muscular weakness [Unknown]
  - Dyspnoea [Unknown]
  - Urine output decreased [Unknown]
  - Headache [Unknown]

NARRATIVE: CASE EVENT DATE: 201405
